FAERS Safety Report 14244405 (Version 9)
Quarter: 2019Q1

REPORT INFORMATION
  Report Type: Report from Study
  Country: FR (occurrence: FR)
  Receive Date: 20171201
  Receipt Date: 20190121
  Transmission Date: 20190417
  Serious: Yes (Hospitalization, Other)
  Sender: FDA-Public Use
  Company Number: FR-BRISTOL-MYERS SQUIBB COMPANY-BMS-2017-072988

PATIENT
  Age: 67 Year
  Sex: Male

DRUGS (2)
  1. NIVOLUMAB [Suspect]
     Active Substance: NIVOLUMAB
     Indication: LUNG NEOPLASM MALIGNANT
     Dosage: 204 MG (3MG/KG), Q2WK
     Route: 042
     Dates: start: 20170717, end: 20170828
  2. PARACETAMOL [Concomitant]
     Active Substance: ACETAMINOPHEN
     Indication: PRODUCT USED FOR UNKNOWN INDICATION
     Route: 065

REACTIONS (9)
  - Scratch [Recovered/Resolved]
  - Dyspnoea exertional [Unknown]
  - Anaemia [Not Recovered/Not Resolved]
  - Prostatism [Recovering/Resolving]
  - Back pain [Recovered/Resolved]
  - Cough [Recovered/Resolved]
  - Anxiety [Unknown]
  - Asthenia [Not Recovered/Not Resolved]
  - Hyponatraemia [Recovering/Resolving]

NARRATIVE: CASE EVENT DATE: 20170718
